FAERS Safety Report 7086204-0 (Version None)
Quarter: 2010Q4

REPORT INFORMATION
  Report Type: 
  Country: None (occurrence: None)
  Receive Date: 20101105
  Receipt Date: 20101025
  Transmission Date: 20110411
  Serious: Yes (Death, Hospitalization, Other)
  Sender: FDA-Public Use
  Company Number: US-ELI_LILLY_AND_COMPANY-US201010005854

PATIENT
  Sex: Female

DRUGS (9)
  1. ZYPREXA [Suspect]
     Indication: BIPOLAR DISORDER
     Dosage: 20 MG, DAILY ONCE NIGHTLY
     Route: 065
     Dates: start: 19980101
  2. ARICEPT [Concomitant]
     Dosage: UNK, UNKNOWN
     Route: 065
  3. URSODIOL [Concomitant]
     Dosage: UNK, UNKNOWN
     Route: 065
  4. LASIX [Concomitant]
     Dosage: UNK, UNKNOWN
     Route: 065
  5. ISOSORBID /00586303/ [Concomitant]
     Dosage: UNK, UNKNOWN
     Route: 065
  6. BENTYL [Concomitant]
     Dosage: UNK, UNKNOWN
     Route: 065
  7. PHENERGAN [Concomitant]
     Dosage: UNK, UNKNOWN
     Route: 065
  8. PREVACID [Concomitant]
     Dosage: UNK, UNKNOWN
     Route: 065
  9. CARAFATE [Concomitant]
     Dosage: UNK, UNKNOWN
     Route: 065

REACTIONS (8)
  - CALCULUS BLADDER [None]
  - CARDIAC ARREST [None]
  - CARDIAC FAILURE [None]
  - HALLUCINATION, VISUAL [None]
  - PNEUMONIA ASPIRATION [None]
  - PULMONARY OEDEMA [None]
  - SEPSIS [None]
  - VOMITING [None]
